FAERS Safety Report 19879160 (Version 24)
Quarter: 2024Q4

REPORT INFORMATION
  Report Type: Report from Study
  Country: JP (occurrence: JP)
  Receive Date: 20210924
  Receipt Date: 20241126
  Transmission Date: 20250115
  Serious: Yes (Life-Threatening, Hospitalization, Disabling, Other)
  Sender: NOVARTIS
  Company Number: NVSJ2020JP014668

PATIENT
  Age: 66 Month
  Sex: Female
  Weight: 10.2 kg

DRUGS (14)
  1. ZOLGENSMA [Suspect]
     Active Substance: ONASEMNOGENE ABEPARVOVEC-XIOI
     Indication: Spinal muscular atrophy
     Dosage: 1.1X10^14 VG/KG, ONCE/SINGLE
     Route: 042
     Dates: start: 20200708, end: 20200708
  2. PREDNISOLONE [Concomitant]
     Active Substance: PREDNISOLONE
     Indication: Hepatobiliary disorder prophylaxis
     Dosage: 1 MG/KG
     Route: 065
     Dates: start: 20200707, end: 20200713
  3. PREDNISOLONE [Concomitant]
     Active Substance: PREDNISOLONE
     Dosage: 2 MG/KG
     Route: 065
     Dates: start: 20200714, end: 20200803
  4. PREDNISOLONE [Concomitant]
     Active Substance: PREDNISOLONE
     Dosage: 1 MG/KG
     Route: 065
     Dates: start: 20200804, end: 20200818
  5. PREDNISOLONE [Concomitant]
     Active Substance: PREDNISOLONE
     Dosage: 0.75 MG/KG
     Route: 065
     Dates: start: 20200819, end: 20200902
  6. PREDNISOLONE [Concomitant]
     Active Substance: PREDNISOLONE
     Dosage: 1 MG/KG
     Route: 065
     Dates: start: 20200903, end: 20200930
  7. PREDNISOLONE [Concomitant]
     Active Substance: PREDNISOLONE
     Dosage: 0.75 MG/KG
     Route: 065
     Dates: start: 20201001, end: 20201014
  8. PREDNISOLONE [Concomitant]
     Active Substance: PREDNISOLONE
     Dosage: 0.5 MG/KG
     Route: 065
     Dates: start: 20201015, end: 20201028
  9. PREDNISOLONE [Concomitant]
     Active Substance: PREDNISOLONE
     Dosage: 0.25 MG/KG
     Route: 065
     Dates: start: 20201029, end: 20201111
  10. CLAFORAN [Concomitant]
     Active Substance: CEFOTAXIME SODIUM
     Indication: Infection prophylaxis
     Dosage: 500 MG
     Route: 041
     Dates: start: 20200722, end: 20200727
  11. OMEPRAZOLE [Concomitant]
     Active Substance: OMEPRAZOLE
     Indication: Gastritis prophylaxis
     Dosage: 4 MG
     Route: 041
     Dates: start: 20200722, end: 20200727
  12. BANAN [Concomitant]
     Active Substance: CEFPODOXIME PROXETIL
     Indication: Infection prophylaxis
     Dosage: 30 MG
     Route: 048
     Dates: start: 20200724, end: 20200824
  13. LANSOPRAZOLE [Concomitant]
     Active Substance: LANSOPRAZOLE
     Indication: Gastritis prophylaxis
     Dosage: 5 MG
     Route: 048
     Dates: start: 20200728, end: 20200811
  14. FAMOTIDINE [Concomitant]
     Active Substance: FAMOTIDINE
     Indication: Gastritis prophylaxis
     Dosage: 5 MG
     Route: 048
     Dates: start: 20200812, end: 20200829

REACTIONS (31)
  - Thrombotic microangiopathy [Recovering/Resolving]
  - Haemorrhagic diathesis [Unknown]
  - Acute kidney injury [Recovering/Resolving]
  - Glycosuria [Recovered/Resolved]
  - Haematuria [Recovered/Resolved]
  - Proteinuria [Recovered/Resolved]
  - Vomiting [Recovered/Resolved]
  - Platelet count decreased [Recovered/Resolved]
  - Haptoglobin decreased [Recovered/Resolved]
  - Cardiac failure congestive [Recovered/Resolved]
  - Haemolytic anaemia [Recovered/Resolved]
  - Haemorrhage subcutaneous [Unknown]
  - Injection site haemorrhage [Unknown]
  - Azotaemia [Unknown]
  - Hyperkalaemia [Unknown]
  - Blood creatinine increased [Recovered/Resolved]
  - Blood creatine phosphokinase increased [Recovered/Resolved]
  - Hypertension [Not Recovered/Not Resolved]
  - Red blood cell schistocytes present [Unknown]
  - Upper respiratory tract infection [Recovered/Resolved]
  - Blood lactate dehydrogenase increased [Recovered/Resolved]
  - Alanine aminotransferase increased [Recovered/Resolved]
  - Aspartate aminotransferase increased [Recovered/Resolved]
  - Decreased appetite [Recovered/Resolved]
  - Generalised oedema [Recovered/Resolved]
  - Hepatic function abnormal [Recovered/Resolved]
  - Malaise [Recovered/Resolved]
  - Pyrexia [Recovered/Resolved]
  - Troponin I increased [Recovered/Resolved]
  - Troponin T increased [Recovered/Resolved]
  - Weight increased [Recovered/Resolved]

NARRATIVE: CASE EVENT DATE: 20200710
